FAERS Safety Report 8251172-2 (Version None)
Quarter: 2012Q1

REPORT INFORMATION
  Report Type: 
  Country: None (occurrence: None)
  Receive Date: 20120321
  Receipt Date: 20100803
  Transmission Date: 20120608
  Serious: No
  Sender: FDA-Public Use
  Company Number: PHHY2010US51565

PATIENT
  Age: 25 Year
  Sex: Female

DRUGS (1)
  1. ILARIS [Suspect]
     Indication: MUCKLE-WELLS SYNDROME
     Dosage: 150 MG, Q7 WEEKS, SUBCUTANEOUS
     Route: 058
     Dates: start: 20080301

REACTIONS (1)
  - VERTIGO [None]
